FAERS Safety Report 4445749-X (Version None)
Quarter: 2004Q3

REPORT INFORMATION
  Report Type: 
  Country: None (occurrence: None)
  Receive Date: 20040902
  Receipt Date: 20040812
  Transmission Date: 20050211
  Serious: Yes (Hospitalization)
  Sender: FDA-Public Use
  Company Number: EWC040840278

PATIENT
  Age: 61 Year
  Sex: Male
  Weight: 65 kg

DRUGS (4)
  1. GEMCITABINE HYDROCHLORIDE-IV (GEMCITABINE) [Suspect]
     Indication: LUNG NEOPLASM MALIGNANT
     Dosage: 1730 MG/2 OTHER
     Route: 050
     Dates: start: 20030903
  2. CISPLATIN [Suspect]
     Indication: LUNG NEOPLASM MALIGNANT
     Dosage: 138 MG/1 OTHER
     Route: 050
     Dates: start: 20030903
  3. MANNITOL [Concomitant]
  4. ANZEMET (DOLASETRON MESILATE) [Concomitant]

REACTIONS (1)
  - CEREBRAL INFARCTION [None]
